FAERS Safety Report 18453336 (Version 2)
Quarter: 2020Q4

REPORT INFORMATION
  Report Type: Spontaneous
  Country: SG (occurrence: SG)
  Receive Date: 20201102
  Receipt Date: 20201106
  Transmission Date: 20210114
  Serious: Yes (Life-Threatening, Other)
  Sender: FDA-Public Use
  Company Number: SG-PFIZER INC-2020419175

PATIENT
  Age: 29 Year
  Sex: Female

DRUGS (7)
  1. CALCIUM FOLINATE [Suspect]
     Active Substance: LEUCOVORIN CALCIUM
     Indication: ADENOCARCINOMA OF COLON
     Dosage: UNK, CYCLIC (MFOLFOX6 REGIMEN CONTINUED FOR 4 CYCLES)
  2. FLUOROURACIL. [Suspect]
     Active Substance: FLUOROURACIL
     Dosage: UNK, CYCLIC (MFOLFOX6 REGIMEN CONTINUED FOR 4 CYCLES)
  3. OXALIPLATIN. [Suspect]
     Active Substance: OXALIPLATIN
     Indication: ADENOCARCINOMA OF COLON
     Dosage: UNK, CYCLIC (MFOLFOX6 REGIMEN CONTINUED FOR 4 CYCLES)
  4. POTASSIUM CHLORIDE. [Concomitant]
     Active Substance: POTASSIUM CHLORIDE
     Indication: HYPOKALAEMIA
     Dosage: UNK
  5. FLUOROURACIL. [Suspect]
     Active Substance: FLUOROURACIL
     Indication: ADENOCARCINOMA OF COLON
     Dosage: BIWEEKLY (INFUSIONAL)
  6. INDOMETACIN [Concomitant]
     Active Substance: INDOMETHACIN
     Indication: GITELMAN^S SYNDROME
     Dosage: UNK
  7. SPIRONOLACTONE. [Concomitant]
     Active Substance: SPIRONOLACTONE
     Indication: GITELMAN^S SYNDROME
     Dosage: UNK

REACTIONS (1)
  - Hypokalaemia [Unknown]
